FAERS Safety Report 8036432-2 (Version None)
Quarter: 2012Q1

REPORT INFORMATION
  Report Type: 
  Country: None (occurrence: None)
  Receive Date: 20120111
  Receipt Date: 20120106
  Transmission Date: 20120608
  Serious: Yes (Hospitalization, Disabling)
  Sender: FDA-Public Use
  Company Number: US-B.I. PHARMACEUTICALS,INC./RIDGEFIELD-2011-BP-28043BP

PATIENT
  Sex: Female

DRUGS (4)
  1. PRADAXA [Suspect]
     Indication: ATRIAL FIBRILLATION
     Dosage: 300 MG
     Route: 048
     Dates: start: 20110308, end: 20111124
  2. ZOCOR [Concomitant]
     Dosage: 20 MG
  3. CARDIZEM [Concomitant]
     Dosage: 240 MG
  4. PRADAXA [Suspect]
     Indication: TRANSIENT ISCHAEMIC ATTACK

REACTIONS (1)
  - CEREBRAL HAEMORRHAGE [None]
